FAERS Safety Report 10645991 (Version 1)
Quarter: 2014Q4

REPORT INFORMATION
  Report Type: Spontaneous
  Country: None (occurrence: None)
  Receive Date: 20141209
  Receipt Date: 20141209
  Transmission Date: 20150529
  Serious: Yes (Hospitalization)
  Sender: FDA-Public Use
  Company Number: 2014120018

PATIENT
  Age: 73 Year
  Sex: Female

DRUGS (14)
  1. KCL HAUSMANN (POTASSIUM CHLORIDE) [Concomitant]
  2. BELOC ZOK (METOPROLOL SUCCINATE) [Concomitant]
     Active Substance: METOPROLOL SUCCINATE
  3. AUGMENTIN (AMOXICILLIN SODIUM, CLAVULANATE POTASSIUM) [Concomitant]
  4. CIPROXIN (CIPROFLOXACIN) [Suspect]
     Active Substance: CIPROFLOXACIN
     Indication: PNEUMONIA NECROTISING
     Dosage: 1500 MG (750 MG, 1 IN 12 HR)
     Route: 048
     Dates: start: 20140929, end: 20141003
  5. ASPIRIN CARDIO (ACETYLSALICYLIC ACID) [Concomitant]
     Active Substance: ASPIRIN
  6. ZESTRIL [Suspect]
     Active Substance: LISINOPRIL
     Indication: CORONARY ARTERY DISEASE
     Route: 048
     Dates: end: 20141003
  7. SERTRALIN PFIZER (SERTRALINE) [Concomitant]
  8. HEPARIN BICHSEL (HEPARIN SODIUM) [Concomitant]
  9. AZICLAV (AMOXICILLIN, CLAVULANATE POTASSIUM) [Concomitant]
  10. PIPERACILLIN AND TAZOBACTAM [Suspect]
     Active Substance: PIPERACILLIN SODIUM\TAZOBACTAM SODIUM
     Indication: PNEUMONIA NECROTISING
     Dosage: 13.5 GM (4.5 GM, 1 IN 8HR)
     Route: 042
     Dates: start: 20140922, end: 20140929
  11. FRAGMIN (HEPARIN-FRACTION, SODIUM SALT) [Concomitant]
     Active Substance: DALTEPARIN SODIUM
  12. TOREM (TORASEMIDE) [Suspect]
     Active Substance: TORSEMIDE
     Route: 048
     Dates: end: 201410
  13. CLINDAMYCIN [Suspect]
     Active Substance: CLINDAMYCIN\CLINDAMYCIN PHOSPHATE
     Indication: PNEUMONIA NECROTISING
     Dosage: 900 MG (300 MG, 3 IN 1 D)
     Route: 048
     Dates: start: 20140929, end: 20141003
  14. CORDARONE (AMIODARONE HYDROCHLORIDE) [Concomitant]

REACTIONS (5)
  - Drug interaction [None]
  - Cardiac failure [None]
  - Acute kidney injury [None]
  - Tubulointerstitial nephritis [None]
  - Weight increased [None]

NARRATIVE: CASE EVENT DATE: 20141003
